FAERS Safety Report 5830016-X (Version None)
Quarter: 2008Q3

REPORT INFORMATION
  Report Type: 
  Country: None (occurrence: None)
  Receive Date: 20080731
  Receipt Date: 20080731
  Transmission Date: 20090109
  Serious: Yes (Other)
  Sender: FDA-Public Use
  Company Number: None

PATIENT
  Age: 48 Year
  Sex: Female
  Weight: 99.7913 kg

DRUGS (2)
  1. LEXAPRO [Suspect]
     Indication: ANXIETY
     Dosage: 5MG DAILY PO
     Route: 048
     Dates: start: 20060101, end: 20080716
  2. LEXAPRO [Suspect]
     Indication: DEPRESSION
     Dosage: 5MG DAILY PO
     Route: 048
     Dates: start: 20060101, end: 20080716

REACTIONS (11)
  - ABDOMINAL PAIN UPPER [None]
  - ASTHENIA [None]
  - BRONCHOSPASM [None]
  - CONSTIPATION [None]
  - DIARRHOEA [None]
  - DRUG WITHDRAWAL SYNDROME [None]
  - DYSPNOEA [None]
  - LARYNGOSPASM [None]
  - MUSCLE SPASMS [None]
  - TONGUE SPASM [None]
  - WHEEZING [None]
